FAERS Safety Report 8825584 (Version 1)
Quarter: 2012Q4

REPORT INFORMATION
  Report Type: 
  Country: ES (occurrence: ES)
  Receive Date: 20121004
  Receipt Date: 20121004
  Transmission Date: 20130627
  Serious: Yes (Life-Threatening, Hospitalization)
  Sender: FDA-Public Use
  Company Number: PHHY2012ES084872

PATIENT
  Age: 79 Year
  Sex: Female

DRUGS (6)
  1. CO-DIOVAN [Suspect]
     Indication: HYPERTENSION
     Dosage: 1 DF, daily (160 mg vals/ unknown HCTZ)
     Route: 048
     Dates: start: 200903, end: 20120326
  2. HALOPERIDOL [Interacting]
     Indication: AGITATION
     Dosage: 30 goutes/8 hrs
     Dates: start: 20120319, end: 20120325
  3. BEMIPARIN [Concomitant]
     Dates: start: 20120318
  4. PARACETAMOL [Concomitant]
     Dates: start: 20120320
  5. CAPTOPRIL [Concomitant]
  6. PANTOPRAZOLE [Concomitant]

REACTIONS (5)
  - Hyponatraemia [Recovered/Resolved]
  - Craniocerebral injury [Unknown]
  - Skull fracture [Unknown]
  - Cerebellar haematoma [Unknown]
  - Drug interaction [Unknown]
